FAERS Safety Report 11191775 (Version 4)
Quarter: 2015Q3

REPORT INFORMATION
  Report Type: Spontaneous
  Country: AT (occurrence: None)
  Receive Date: 20150612
  Receipt Date: 20150721
  Transmission Date: 20151125
  Serious: Yes (Hospitalization, Other)
  Sender: FDA-Public Use
  Company Number: KAD201506-001506

PATIENT
  Age: 55 Year
  Sex: Male
  Weight: 85 kg

DRUGS (15)
  1. RIBAVIRIN 200 MG (RIBVAVIRIN) [Suspect]
     Active Substance: RIBAVIRIN
     Indication: HEPATITIS C
     Dosage: TABLET; DIVIDED DOSES DAILY: TOTAL DAILY DOSE 1200 MG (200 MG)
     Route: 048
     Dates: start: 20150122
  2. ABT-450/RITONAVTR/ABT-267 (OMBITASVIR, PARITAPREVIR, RITONAVIR) [Suspect]
     Active Substance: OMBITASVIR\PARITAPREVIR\RITONAVIR
     Indication: HEPATITIS C
     Dosage: 150/100/25 MG
     Route: 048
     Dates: start: 20150122
  3. TRAJENTA (LINAGLIPTIN) [Concomitant]
     Active Substance: LINAGLIPTIN
  4. DIABETEX (METFORMIN HYDROCHLORIDE) [Concomitant]
  5. THROMBO ASS (ACETYLSALICYLIC ACID) [Concomitant]
     Active Substance: ASPIRIN
  6. DIAMICRON MR 30 (GLICLAZIDE) [Concomitant]
  7. DOXAZOSIN [Concomitant]
     Active Substance: DOXAZOSIN\DOXAZOSIN MESYLATE
  8. NOVORAPID [Concomitant]
     Active Substance: INSULIN ASPART
  9. LANTUS [Concomitant]
     Active Substance: INSULIN GLARGINE
  10. DIAMICRON MER (GLICLAZIDE) [Concomitant]
  11. AMLODIPINE [Concomitant]
     Active Substance: AMLODIPINE BESYLATE
  12. HYPREN PLUS (SALUTEC) (HYDROCHLOROTHIAZIDE, RAMIPRIL) [Concomitant]
  13. CONCOR (BISOPROLOL FUMARATE) [Concomitant]
  14. SORTIS (ATORVASTATIN CALCIUM) [Concomitant]
     Active Substance: ATORVASTATIN
  15. PANTOLOC (PANTOPRAZOLE SODIUM SESQUIHYDRATE) [Concomitant]

REACTIONS (3)
  - Acute coronary syndrome [None]
  - Creatinine renal clearance decreased [None]
  - Anaemia [None]

NARRATIVE: CASE EVENT DATE: 20150415
